FAERS Safety Report 8917804 (Version 3)
Quarter: 2013Q1

REPORT INFORMATION
  Report Type: Spontaneous
  Country: US (occurrence: US)
  Receive Date: 20121120
  Receipt Date: 20130126
  Transmission Date: 20140127
  Serious: No
  Sender: FDA-Public Use
  Company Number: US-ASTRAZENECA-2010SE27061

PATIENT
  Age: 59 Year
  Sex: Male

DRUGS (2)
  1. NEXIUM [Suspect]
     Dosage: TAKES ONE 40MG BEFORE HE GETS UP IN THE MORNING AND ONE BEFORE DINNER AROUND 5PM
     Route: 048
  2. ZANTAC [Concomitant]

REACTIONS (5)
  - Gastrooesophageal reflux disease [Unknown]
  - Influenza [Unknown]
  - Malaise [Unknown]
  - Off label use [Unknown]
  - Drug ineffective [Unknown]
